FAERS Safety Report 9248941 (Version 3)
Quarter: 2013Q2

REPORT INFORMATION
  Report Type: Report from Study
  Country: FR (occurrence: FR)
  Receive Date: 20130423
  Receipt Date: 20130612
  Transmission Date: 20140414
  Serious: Yes (Death, Life-Threatening, Hospitalization, Other)
  Sender: FDA-Public Use
  Company Number: FR-AMGEN-FRASP2013027828

PATIENT
  Age: 60 Year
  Sex: Female
  Weight: 83.5 kg

DRUGS (7)
  1. PEGFILGRASTIM [Suspect]
     Indication: NEUTROPENIA
     Dosage: 6 MG, UNK
     Route: 058
     Dates: start: 20130326, end: 20130326
  2. PEMETREXED [Concomitant]
     Indication: FEBRILE NEUTROPENIA
     Dosage: 1070 MG, UNK
     Dates: end: 20130325
  3. CARBOPLATIN [Concomitant]
     Indication: FEBRILE NEUTROPENIA
     Dosage: 642 MG, UNK
     Dates: end: 20130325
  4. ZOPHREN [Concomitant]
     Dosage: 8 MG, UNK
     Route: 042
  5. PRIMPERAN [Concomitant]
     Dosage: 20 MG, UNK
  6. SOLUMEDROL [Concomitant]
     Dosage: 80 MG, UNK
  7. DUROGESIC [Concomitant]
     Indication: ORAL FUNGAL INFECTION
     Dosage: 12 MUG, UNK
     Route: 061

REACTIONS (2)
  - Febrile neutropenia [Fatal]
  - Febrile bone marrow aplasia [Not Recovered/Not Resolved]
